FAERS Safety Report 9661002 (Version 1)
Quarter: 2013Q4

REPORT INFORMATION
  Report Type: Spontaneous
  Country: GB (occurrence: GB)
  Receive Date: 20131031
  Receipt Date: 20131031
  Transmission Date: 20140711
  Serious: Yes (Hospitalization, Disabling)
  Sender: FDA-Public Use
  Company Number: GB-TEVA-440883ISR

PATIENT
  Age: 57 Year
  Sex: Female
  Weight: 81 kg

DRUGS (5)
  1. GABAPENTIN [Suspect]
     Indication: PROCTALGIA
     Dosage: 200 MILLIGRAM DAILY;
     Route: 048
     Dates: start: 20130604, end: 20130609
  2. ATENOLOL [Concomitant]
     Dosage: 25 MILLIGRAM DAILY;
  3. CODEINE [Concomitant]
     Dosage: 1 TO 2 WHEN REQUIRED.
  4. LAXIDO [Concomitant]
     Dosage: WHEN REQUIRED.
  5. LISINOPRIL [Concomitant]

REACTIONS (4)
  - Paraesthesia [Recovering/Resolving]
  - Dyskinesia [Recovering/Resolving]
  - Muscular weakness [Recovering/Resolving]
  - Abasia [Recovering/Resolving]
